FAERS Safety Report 9564943 (Version 1)
Quarter: 2013Q3

REPORT INFORMATION
  Report Type: Spontaneous
  Country: US (occurrence: US)
  Receive Date: 20130930
  Receipt Date: 20130930
  Transmission Date: 20140515
  Serious: Yes (Other)
  Sender: FDA-Public Use
  Company Number: PHEH2013US019987

PATIENT
  Age: 75 Year
  Sex: Female
  Weight: 53 kg

DRUGS (1)
  1. AFINITOR [Suspect]
     Dosage: 5 MG, QD
     Route: 048
     Dates: start: 20130322, end: 20130701

REACTIONS (3)
  - Hyponatraemia [Not Recovered/Not Resolved]
  - Stomatitis [Unknown]
  - Fluid intake restriction [Unknown]
